FAERS Safety Report 18277992 (Version 1)
Quarter: 2020Q3

REPORT INFORMATION
  Report Type: Spontaneous
  Country: DE (occurrence: DE)
  Receive Date: 20200917
  Receipt Date: 20200917
  Transmission Date: 20201103
  Serious: Yes (Other)
  Sender: FDA-Public Use
  Company Number: DE-MYLANLABS-2020M1078344

PATIENT
  Age: 63 Year
  Sex: Female

DRUGS (27)
  1. VALSARTAN. [Suspect]
     Active Substance: VALSARTAN
     Indication: PRODUCT USED FOR UNKNOWN INDICATION
     Dosage: 160 MILLIGRAM DAILY; (VALSARTAN ABZ )
     Route: 048
     Dates: start: 2017, end: 2018
  2. MIANSERIN NEURAXPHARM [Concomitant]
     Dosage: UNK
  3. CLOBEGALEN [Concomitant]
     Dosage: UNK
  4. VALSACOR [Suspect]
     Active Substance: VALSARTAN
     Indication: PRODUCT USED FOR UNKNOWN INDICATION
     Dosage: 160 MILLIGRAM DAILY;
     Route: 048
  5. BAYOTENSIN AKUT [Concomitant]
     Active Substance: NITRENDIPINE
     Dosage: UNK (BAYOTENSIN AKUT PHIOLEN)
  6. AMOXICILLIN W/CLAVULANIC ACID [Concomitant]
     Active Substance: AMOXICILLIN\CLAVULANIC ACID
     Dosage: UNK
  7. METFORMIN [Concomitant]
     Active Substance: METFORMIN HYDROCHLORIDE
     Dosage: UNK
  8. PANTOPRAZOL ACTAVIS [Concomitant]
     Active Substance: PANTOPRAZOLE SODIUM
     Dosage: UNK
  9. EFEROX [Concomitant]
     Active Substance: LEVOTHYROXINE SODIUM
     Dosage: UNK (EFEROX 175 )
  10. BETAGALEN [Concomitant]
     Dosage: UNK
  11. CALCIUM SANDOZ                     /07357001/ [Concomitant]
     Dosage: UNK
  12. MCP AL [Concomitant]
     Dosage: UNK (MCP AL 10)
  13. NOVAMINSULFON [Concomitant]
     Active Substance: METAMIZOLE
     Dosage: UNK (NOVAMINSULFON 500 MG LICHTENSTEIN)
  14. IBUPROFEN. [Concomitant]
     Active Substance: IBUPROFEN
     Dosage: UNK (IBUPROFEN 600)
  15. VALSARTAN CT [Suspect]
     Active Substance: VALSARTAN
     Indication: PRODUCT USED FOR UNKNOWN INDICATION
     Dosage: 160 MILLIGRAM DAILY;
     Route: 048
     Dates: start: 2018
  16. TRIAMGALEN [Concomitant]
     Active Substance: TRIAMCINOLONE ACETONIDE
     Dosage: UNK
  17. CLINDAHEXAL                        /00166002/ [Concomitant]
     Active Substance: CLINDAMYCIN HYDROCHLORIDE
     Dosage: UNK (CLINDAHEXAL 300)
  18. AMLODIPINE BESILATE [Concomitant]
     Active Substance: AMLODIPINE BESYLATE
     Dosage: UNK
  19. QUETIAPINE. [Concomitant]
     Active Substance: QUETIAPINE
     Dosage: UNK
  20. VOLTAREN [Concomitant]
     Active Substance: DICLOFENAC SODIUM
  21. RISPERIDON ATID [Concomitant]
     Active Substance: RISPERIDONE
     Dosage: UNK
  22. VALSARTAN. [Suspect]
     Active Substance: VALSARTAN
     Indication: PRODUCT USED FOR UNKNOWN INDICATION
     Dosage: 160 MILLIGRAM DAILY;
     Route: 048
  23. VALSARTAN HEUMANN [Suspect]
     Active Substance: VALSARTAN
     Indication: PRODUCT USED FOR UNKNOWN INDICATION
     Dosage: 160 MILLIGRAM DAILY;
     Route: 048
  24. DERMOXIN                           /00337102/ [Concomitant]
     Dosage: UNK
  25. JANUMET [Concomitant]
     Active Substance: METFORMIN HYDROCHLORIDE\SITAGLIPTIN PHOSPHATE
     Dosage: UNK
  26. HYDROGALEN [Concomitant]
     Dosage: UNK
  27. AMOXICILLIN. [Concomitant]
     Active Substance: AMOXICILLIN
     Dosage: UNK (AMOXICILLIN ABZ 1000 MG)

REACTIONS (5)
  - Mental disorder [Not Recovered/Not Resolved]
  - Sarcoma uterus [Not Recovered/Not Resolved]
  - Uterine leiomyoma [Not Recovered/Not Resolved]
  - Quality of life decreased [Not Recovered/Not Resolved]
  - Product impurity [Unknown]

NARRATIVE: CASE EVENT DATE: 2020
